FAERS Safety Report 21687849 (Version 1)
Quarter: 2022Q4

REPORT INFORMATION
  Report Type: Spontaneous
  Country: CA (occurrence: CA)
  Receive Date: 20221206
  Receipt Date: 20221206
  Transmission Date: 20230113
  Serious: Yes (Hospitalization)
  Sender: FDA-Public Use
  Company Number: None

PATIENT
  Age: 10 Year
  Sex: Male
  Weight: 32 kg

DRUGS (27)
  1. METHOTREXATE [Suspect]
     Active Substance: METHOTREXATE
     Indication: Philadelphia positive acute lymphocytic leukaemia
     Dosage: FREQUENCY: CYCLICAL
     Route: 037
  2. IMATINIB [Suspect]
     Active Substance: IMATINIB
     Indication: Philadelphia positive acute lymphocytic leukaemia
     Dosage: FREQUENCY: CYCLICAL
  3. ADRIAMYCIN [Suspect]
     Active Substance: DOXORUBICIN HYDROCHLORIDE
     Indication: Product used for unknown indication
  4. DEXAMETHASONE [Suspect]
     Active Substance: DEXAMETHASONE
     Indication: Product used for unknown indication
  5. MERCAPTOPURINE [Suspect]
     Active Substance: MERCAPTOPURINE
     Indication: Product used for unknown indication
  6. PEGASPARGASE [Suspect]
     Active Substance: PEGASPARGASE
     Indication: Product used for unknown indication
     Dosage: DOSE: 1450.0 UNITS
  7. PREDNISONE [Suspect]
     Active Substance: PREDNISONE
     Indication: Philadelphia positive acute lymphocytic leukaemia
     Dosage: FREQUENCY: CYCLICAL
  8. VINCRISTINE SULFATE [Suspect]
     Active Substance: VINCRISTINE SULFATE
     Indication: Philadelphia positive acute lymphocytic leukaemia
     Dosage: FREQUENCY: CYCLICAL
  9. ZINECARD [Suspect]
     Active Substance: DEXRAZOXANE HYDROCHLORIDE
     Indication: Product used for unknown indication
     Dosage: POWDER FOR SOLUTION INTRAVENOUS
  10. AMITRIPTYLINE [Concomitant]
     Active Substance: AMITRIPTYLINE
  11. AMLODIPINE [Concomitant]
     Active Substance: AMLODIPINE BESYLATE
  12. CLOBAZAM [Concomitant]
     Active Substance: CLOBAZAM
  13. COENZYME Q10 [Concomitant]
     Active Substance: DIETARY SUPPLEMENT\UBIDECARENONE
  14. DIMENHYDRINATE [Concomitant]
     Active Substance: DIMENHYDRINATE
  15. FAMOTIDINE [Concomitant]
     Active Substance: FAMOTIDINE
  16. GABAPENTIN [Concomitant]
     Active Substance: GABAPENTIN
  17. LACOSAMIDE [Concomitant]
     Active Substance: LACOSAMIDE
  18. LEVOCARNITINE [Concomitant]
     Active Substance: LEVOCARNITINE
  19. LEVETIRACETAM [Concomitant]
     Active Substance: LEVETIRACETAM
  20. MELATONIN [Concomitant]
     Active Substance: MELATONIN
  21. METHYLPHENIDATE [Concomitant]
     Active Substance: METHYLPHENIDATE
  22. ONDANSETRON [Concomitant]
     Active Substance: ONDANSETRON
  23. SULFAMETHOXAZOLE\TRIMETHOPRIM [Concomitant]
     Active Substance: SULFAMETHOXAZOLE\TRIMETHOPRIM
     Route: 065
  24. VITAMIN D [Concomitant]
     Active Substance: VITAMIN D NOS
  25. MERCAPTOPURINE [Suspect]
     Active Substance: MERCAPTOPURINE
     Indication: Product used for unknown indication
     Dosage: FREQUENCY: CYCLICAL
  26. METHOTREXATE [Suspect]
     Active Substance: METHOTREXATE
     Indication: Philadelphia positive acute lymphocytic leukaemia
     Dosage: FREQUENCY: CYCLICAL
     Route: 048
  27. VINCRISTINE SULFATE [Suspect]
     Active Substance: VINCRISTINE SULFATE
     Indication: Philadelphia positive acute lymphocytic leukaemia

REACTIONS (4)
  - Cellulitis [Recovered/Resolved]
  - Clostridium difficile colitis [Recovered/Resolved]
  - Enterocolitis [Recovered/Resolved]
  - Febrile neutropenia [Recovered/Resolved]
